FAERS Safety Report 10151963 (Version 1)
Quarter: 2014Q2

REPORT INFORMATION
  Report Type: Spontaneous
  Country: US (occurrence: None)
  Receive Date: 20140501
  Receipt Date: 20140501
  Transmission Date: 20141212
  Serious: Yes (Other)
  Sender: FDA-Public Use
  Company Number: HA14-138-AE

PATIENT
  Sex: Female

DRUGS (1)
  1. SMZ / TMP [Suspect]
     Route: 048

REACTIONS (1)
  - Cystitis [None]
